FAERS Safety Report 8533682-3 (Version None)
Quarter: 2012Q3

REPORT INFORMATION
  Report Type: 
  Country: None (occurrence: None)
  Receive Date: 20120711
  Receipt Date: 20120627
  Transmission Date: 20120928
  Serious: Yes (Other)
  Sender: FDA-Public Use
  Company Number: FK201201824

PATIENT
  Age: 36 Year

DRUGS (10)
  1. ONDANSETRON [Suspect]
     Indication: URINARY TRACT INFECTION
     Dosage: UNKNOWN
  2. SERTRALINE HYDROCHLORIDE [Suspect]
     Indication: BIPOLAR DISORDER
     Dosage: UNKNOWN
  3. CIPROFLOXACIN [Suspect]
     Indication: URINARY TRACT INFECTION
     Dosage: UNKNOWN
  4. BUPROPION HCL [Suspect]
     Indication: BIPOLAR DISORDER
     Dosage: UNKNOWN
  5. ACETAMINOPHEN [Suspect]
     Indication: URINARY TRACT INFECTION
     Dosage: UNKNOWN
  6. VENLAFAXINE HCL [Suspect]
     Indication: BIPOLAR DISORDER
     Dosage: UNKNOWN
  7. LAMOTRIGINE [Suspect]
     Indication: BIPOLAR DISORDER
     Dosage: UNKNOWN
  8. TRAZODONE HCL [Suspect]
     Indication: BIPOLAR DISORDER
     Dosage: UNKNOWN
  9. LITHIUIM (LITHIUM) [Suspect]
     Indication: BIPOLAR DISORDER
     Dosage: UNKNOWN
  10. LOXAZPINE (LOXAPINE) [Suspect]
     Indication: BIPOLAR DISORDER
     Dosage: UNKNOWN

REACTIONS (16)
  - NEUROLEPTIC MALIGNANT SYNDROME [None]
  - MENTAL STATUS CHANGES [None]
  - HEADACHE [None]
  - HEPATOTOXICITY [None]
  - NAUSEA [None]
  - ALANINE AMINOTRANSFERASE INCREASED [None]
  - PYREXIA [None]
  - ASPARTATE AMINOTRANSFERASE INCREASED [None]
  - BLOOD CREATINE PHOSPHOKINASE INCREASED [None]
  - VOMITING [None]
  - AUTONOMIC NERVOUS SYSTEM IMBALANCE [None]
  - HEART RATE INCREASED [None]
  - INTERNATIONAL NORMALISED RATIO INCREASED [None]
  - TOXICITY TO VARIOUS AGENTS [None]
  - URINARY TRACT INFECTION [None]
  - DIARRHOEA [None]
